FAERS Safety Report 9147323 (Version 1)
Quarter: 2013Q1

REPORT INFORMATION
  Report Type: Spontaneous
  Country: NZ (occurrence: NZ)
  Receive Date: 20130307
  Receipt Date: 20130307
  Transmission Date: 20140127
  Serious: Yes (Other)
  Sender: FDA-Public Use
  Company Number: NZ-PFIZER INC-2013076065

PATIENT
  Age: 51 Year
  Sex: Female

DRUGS (1)
  1. VARENICLINE TARTRATE [Suspect]
     Indication: SMOKING CESSATION THERAPY
     Dosage: 1 MG, DAILY

REACTIONS (3)
  - Memory impairment [Not Recovered/Not Resolved]
  - Anxiety [Unknown]
  - Menopausal symptoms [Unknown]
